FAERS Safety Report 8392819-X (Version None)
Quarter: 2012Q1

REPORT INFORMATION
  Report Type: 
  Country: None (occurrence: None)
  Receive Date: 20120323
  Receipt Date: 20110310
  Transmission Date: 20120608
  Serious: Yes (Other)
  Sender: FDA-Public Use
  Company Number: 163-21880-11031506

PATIENT
  Age: 61 Year
  Sex: Male

DRUGS (1)
  1. REVLIMID [Suspect]
     Indication: MULTIPLE MYELOMA
     Dosage: 25 MG, 1 IN 1 D, PO 10 MG, 1 IN 1 D, PO 15 MG, DAILY FOR 28 DAYS, PO
     Route: 048
     Dates: start: 20080701, end: 20080101

REACTIONS (2)
  - NASOPHARYNGITIS [None]
  - FULL BLOOD COUNT DECREASED [None]
